FAERS Safety Report 12499523 (Version 1)
Quarter: 2016Q2

REPORT INFORMATION
  Report Type: Spontaneous
  Country: ES (occurrence: ES)
  Receive Date: 20160627
  Receipt Date: 20160627
  Transmission Date: 20160815
  Serious: Yes (Other)
  Sender: FDA-Public Use
  Company Number: ES-BRACCO-001453

PATIENT
  Age: 66 Year
  Sex: Male

DRUGS (1)
  1. IOPAMIRO [Suspect]
     Active Substance: IOPAMIDOL
     Indication: ANGIOGRAM CEREBRAL
     Route: 013
     Dates: start: 20160603, end: 20160603

REACTIONS (5)
  - Contrast encephalopathy [Recovering/Resolving]
  - Retrograde amnesia [Recovering/Resolving]
  - Visual impairment [Recovering/Resolving]
  - Neurotoxicity [Recovering/Resolving]
  - Disorientation [Recovering/Resolving]

NARRATIVE: CASE EVENT DATE: 20160603
